FAERS Safety Report 15030411 (Version 1)
Quarter: 2018Q2

REPORT INFORMATION
  Report Type: Spontaneous
  Country: DE (occurrence: DE)
  Receive Date: 20180619
  Receipt Date: 20180619
  Transmission Date: 20180711
  Serious: Yes (Hospitalization)
  Sender: FDA-Public Use
  Company Number: DE-US WORLDMEDS, LLC-STA_00019399

PATIENT
  Age: 67 Year
  Sex: Female
  Weight: 62 kg

DRUGS (5)
  1. AMAN 100 [Concomitant]
     Indication: PARKINSON^S DISEASE
     Route: 048
     Dates: start: 200405
  2. CABASERIL [Concomitant]
     Active Substance: CABERGOLINE
     Indication: PARKINSON^S DISEASE
     Route: 048
     Dates: start: 200710, end: 200901
  3. SIFROL 0.7 [Concomitant]
     Indication: PARKINSON^S DISEASE
     Route: 048
     Dates: start: 200403, end: 200901
  4. ISICOM 100 [Concomitant]
     Indication: PARKINSON^S DISEASE
     Route: 048
     Dates: start: 200405
  5. APOMORPHINE HYDROCHLORIDE [Suspect]
     Active Substance: APOMORPHINE HYDROCHLORIDE
     Indication: PARKINSON^S DISEASE
     Route: 058
     Dates: start: 200710, end: 200812

REACTIONS (3)
  - Skin necrosis [Not Recovered/Not Resolved]
  - Cellulitis [Not Recovered/Not Resolved]
  - C-reactive protein increased [Unknown]

NARRATIVE: CASE EVENT DATE: 20081222
